FAERS Safety Report 17349710 (Version 1)
Quarter: 2020Q1

REPORT INFORMATION
  Report Type: Spontaneous
  Country: CA (occurrence: CA)
  Receive Date: 20200130
  Receipt Date: 20200130
  Transmission Date: 20200409
  Serious: Yes (Hospitalization)
  Sender: FDA-Public Use
  Company Number: CA-PFIZER INC-2020036207

PATIENT
  Age: 14 Year
  Sex: Female
  Weight: 66 kg

DRUGS (2)
  1. IBUPROFEN. [Suspect]
     Active Substance: IBUPROFEN
     Dosage: UNK
     Route: 065
  2. TYLENOL [Suspect]
     Active Substance: ACETAMINOPHEN
     Dosage: 16250 MG, UNK
     Route: 065

REACTIONS (2)
  - Drug level increased [Recovered/Resolved]
  - Intentional overdose [Recovered/Resolved]
